FAERS Safety Report 5367373-7 (Version None)
Quarter: 2007Q2

REPORT INFORMATION
  Report Type: 
  Country: None (occurrence: None)
  Receive Date: 20070622
  Receipt Date: 20060815
  Transmission Date: 20071010
  Serious: No
  Sender: FDA-Public Use
  Company Number: US-ASTRAZENECA-2006UW16264

PATIENT
  Age: 77 Year
  Sex: Male
  Weight: 59 kg

DRUGS (3)
  1. PULMICORT RESPULES [Suspect]
     Indication: CHRONIC OBSTRUCTIVE PULMONARY DISEASE
     Route: 055
     Dates: start: 20030101
  2. BLOOD PRESSURE MEDICATION [Concomitant]
  3. ALBUTEROL [Concomitant]

REACTIONS (2)
  - MEDICATION ERROR [None]
  - RASH PRURITIC [None]
